FAERS Safety Report 6046964-4 (Version None)
Quarter: 2009Q1

REPORT INFORMATION
  Report Type: 
  Country: None (occurrence: None)
  Receive Date: 20090114
  Receipt Date: 20090102
  Transmission Date: 20090719
  Serious: Yes (Death)
  Sender: FDA-Public Use
  Company Number: WSDF_00044

PATIENT
  Age: 86 Year
  Sex: Female
  Weight: 52 kg

DRUGS (3)
  1. WINRHO SDF [Suspect]
     Indication: IDIOPATHIC THROMBOCYTOPENIC PURPURA
     Dosage: 46.1 ?G/KG  ONCE IV
     Route: 042
     Dates: start: 19971021, end: 19971021
  2. PREDNISONE [Concomitant]
  3. SYNTHROID [Concomitant]

REACTIONS (14)
  - ANAEMIA [None]
  - CHEST PAIN [None]
  - CHILLS [None]
  - CONDITION AGGRAVATED [None]
  - DRUG INEFFECTIVE [None]
  - HAEMOLYSIS [None]
  - PAIN [None]
  - PULMONARY EMBOLISM [None]
  - PULMONARY OEDEMA [None]
  - PYREXIA [None]
  - REFUSAL OF TREATMENT BY PATIENT [None]
  - RESPIRATORY DISTRESS [None]
  - RESPIRATORY FAILURE [None]
  - THROMBOCYTOPENIA [None]
